FAERS Safety Report 4459528-0 (Version None)
Quarter: 2004Q3

REPORT INFORMATION
  Report Type: 
  Country: None (occurrence: None)
  Receive Date: 20040910
  Receipt Date: 20040615
  Transmission Date: 20050211
  Serious: No
  Sender: FDA-Public Use
  Company Number: 2004219443US

PATIENT
  Age: 59 Year
  Sex: Female

DRUGS (2)
  1. BEXTRA [Suspect]
     Indication: CHEST WALL PAIN
     Dosage: 10 MG, BID
     Dates: start: 20040610
  2. DETROL LA [Suspect]
     Indication: HYPERTONIC BLADDER
     Dosage: 4 MG, QD

REACTIONS (2)
  - GENITAL PRURITUS FEMALE [None]
  - INCONTINENCE [None]
